FAERS Safety Report 9511368 (Version 1)
Quarter: 2013Q3

REPORT INFORMATION
  Report Type: Spontaneous
  Country: US (occurrence: None)
  Receive Date: 20130909
  Receipt Date: 20130909
  Transmission Date: 20140515
  Serious: Yes (Disabling)
  Sender: FDA-Public Use
  Company Number: None

PATIENT
  Age: 56 Year
  Sex: Female
  Weight: 92.08 kg

DRUGS (5)
  1. AVALOX [Suspect]
     Indication: SINUSITIS
     Dosage: 10 PILLS ONCE DAILY TAKEN BY MOUTH ?ONLY TOOK FOR 3 DAYS INSTEAD OF
     Route: 048
  2. MICARDIS [Concomitant]
  3. TRAZADONE [Concomitant]
  4. ZONISAMIDE [Concomitant]
  5. MOTRIN [Concomitant]

REACTIONS (5)
  - Hypoaesthesia [None]
  - Quality of life decreased [None]
  - Hypoaesthesia [None]
  - Pain in extremity [None]
  - Pain in extremity [None]
